FAERS Safety Report 8834663 (Version 2)
Quarter: 2012Q4

REPORT INFORMATION
  Report Type: 
  Country: US (occurrence: US)
  Receive Date: 20121010
  Receipt Date: 20121109
  Transmission Date: 20130627
  Serious: Yes (Other)
  Sender: FDA-Public Use
  Company Number: PHEH2012US019666

PATIENT
  Age: 75 None
  Sex: Female
  Weight: 164 kg

DRUGS (8)
  1. DIOVAN [Suspect]
     Indication: BLOOD PRESSURE
     Dosage: 80 mg, QD
     Route: 048
  2. DIOVAN HCT [Suspect]
     Indication: BLOOD PRESSURE
     Dosage: 1 DF (160 mg vals/12.5 mg HCTZ), QD
     Route: 048
     Dates: start: 201005
  3. DIOVAN HCT [Suspect]
     Dosage: 0.5 DF(160mg), UNK
     Dates: start: 201103
  4. DIOVAN HCT [Suspect]
     Dosage: 160 mg, UNK
     Dates: start: 201104
  5. EVISTA [Suspect]
  6. PROPYLTHIOURCIL [Concomitant]
     Dosage: 50 mg, BID
  7. SIMVASTATIN [Concomitant]
  8. MULTI-VITAMINS [Concomitant]

REACTIONS (6)
  - Type 2 diabetes mellitus [Unknown]
  - Blood pressure inadequately controlled [Unknown]
  - Eye disorder [Unknown]
  - Cataract [Unknown]
  - Expired drug administered [Unknown]
  - Wrong technique in drug usage process [Unknown]
